FAERS Safety Report 11348606 (Version 5)
Quarter: 2015Q4

REPORT INFORMATION
  Report Type: Report from Study
  Country: US (occurrence: US)
  Receive Date: 20150806
  Receipt Date: 20151208
  Transmission Date: 20160304
  Serious: Yes (Hospitalization)
  Sender: FDA-Public Use
  Company Number: US-SEATTLE GENETICS-2015SGN01294

PATIENT

DRUGS (4)
  1. BRENTUXIMAB VEDOTIN [Suspect]
     Active Substance: BRENTUXIMAB VEDOTIN
     Indication: HODGKIN^S DISEASE
     Dosage: 1.2 MG/KG, Q14D
     Route: 042
     Dates: start: 20131226
  2. DOXORUBICIN [Suspect]
     Active Substance: DOXORUBICIN
     Indication: HODGKIN^S DISEASE
     Dosage: 25 MG/M2, Q14D
     Route: 042
     Dates: start: 20131226
  3. DACARBAZINE. [Suspect]
     Active Substance: DACARBAZINE
     Indication: HODGKIN^S DISEASE
     Dosage: 375 MG/M2, Q14D
     Route: 042
     Dates: start: 20131226
  4. VINBLASTINE [Suspect]
     Active Substance: VINBLASTINE
     Indication: HODGKIN^S DISEASE
     Dosage: 6 MG/M2, Q14D
     Route: 042
     Dates: start: 20131226

REACTIONS (10)
  - Vomiting [None]
  - Colitis [None]
  - Urinary retention [None]
  - Deep vein thrombosis [None]
  - Febrile neutropenia [Recovered/Resolved]
  - Delirium [Recovered/Resolved]
  - Hypotension [Recovered/Resolved]
  - Clostridium test positive [None]
  - Hyperglycaemia [None]
  - Nausea [None]

NARRATIVE: CASE EVENT DATE: 20140115
